FAERS Safety Report 6303239-3 (Version None)
Quarter: 2009Q3

REPORT INFORMATION
  Report Type: 
  Country: None (occurrence: None)
  Receive Date: 20090810
  Receipt Date: 20090324
  Transmission Date: 20100115
  Serious: No
  Sender: FDA-Public Use
  Company Number: A0771136A

PATIENT
  Age: 32 Year
  Sex: Female
  Weight: 74.1 kg

DRUGS (4)
  1. PAXIL [Suspect]
     Indication: DEPRESSION
     Dosage: 10MG PER DAY
     Route: 048
     Dates: start: 20070401
  2. VERAMYST [Suspect]
     Indication: SEASONAL ALLERGY
     Dosage: 1SPR AS REQUIRED
     Route: 045
     Dates: start: 20080908, end: 20081225
  3. WELLBUTRIN XL [Suspect]
     Indication: DEPRESSION
     Dosage: 300MG PER DAY
     Route: 048
     Dates: start: 20070401, end: 20090302
  4. MULTI-VITAMIN [Concomitant]

REACTIONS (1)
  - DRUG EXPOSURE DURING PREGNANCY [None]
